FAERS Safety Report 13903244 (Version 3)
Quarter: 2017Q4

REPORT INFORMATION
  Report Type: Spontaneous
  Country: US (occurrence: US)
  Receive Date: 20170824
  Receipt Date: 20171019
  Transmission Date: 20180320
  Serious: No
  Sender: FDA-Public Use
  Company Number: US-PFIZER INC-2017367031

PATIENT
  Age: 57 Year
  Sex: Female

DRUGS (2)
  1. XANAX [Suspect]
     Active Substance: ALPRAZOLAM
     Dosage: 25 MG, AS NEEDED
  2. XELJANZ XR [Suspect]
     Active Substance: TOFACITINIB CITRATE
     Dosage: 11 MG, UNK

REACTIONS (4)
  - Condition aggravated [Unknown]
  - Aspartate aminotransferase increased [Unknown]
  - Arthralgia [Unknown]
  - Musculoskeletal stiffness [Unknown]
